FAERS Safety Report 5476967-X (Version None)
Quarter: 2007Q4

REPORT INFORMATION
  Report Type: 
  Country: None (occurrence: None)
  Receive Date: 20071003
  Receipt Date: 20071003
  Transmission Date: 20080405
  Serious: Yes (Life-Threatening)
  Sender: FDA-Public Use
  Company Number: None

PATIENT
  Age: 47 Year
  Sex: Female
  Weight: 63.5036 kg

DRUGS (2)
  1. PROAIR HFA [Suspect]
     Indication: ASTHMA
     Dosage: 2 PUFFS  EVERY 4-6 HOURS  INHAL
     Route: 055
     Dates: start: 20070601
  2. PROAIR HFA [Suspect]
     Indication: BRONCHITIS
     Dosage: 2 PUFFS  EVERY 4-6 HOURS  INHAL
     Route: 055
     Dates: start: 20070601

REACTIONS (6)
  - BRONCHOSPASM [None]
  - DRUG INEFFECTIVE [None]
  - PARAESTHESIA ORAL [None]
  - PHARMACEUTICAL PRODUCT COMPLAINT [None]
  - PHARYNGOLARYNGEAL PAIN [None]
  - WHEEZING [None]
